FAERS Safety Report 18694865 (Version 1)
Quarter: 2021Q1

REPORT INFORMATION
  Report Type: Spontaneous
  Country: US (occurrence: US)
  Receive Date: 20210101
  Receipt Date: 20210101
  Transmission Date: 20210419
  Serious: No
  Sender: FDA-Public Use
  Company Number: None

PATIENT
  Age: 28 Year
  Sex: Female
  Weight: 63 kg

DRUGS (2)
  1. DAILY MULTIVITAMIN [Concomitant]
     Active Substance: VITAMINS
  2. CSI HAND SANITIZER [Suspect]
     Active Substance: ALCOHOL
     Indication: COVID-19 PROPHYLAXIS
     Dosage: ?          QUANTITY:1 GEL (HAND SANITIZ);?
     Route: 061
     Dates: start: 20201229, end: 20201231

REACTIONS (5)
  - Application site rash [None]
  - Skin disorder [None]
  - Application site burn [None]
  - Application site erythema [None]
  - Erythema [None]

NARRATIVE: CASE EVENT DATE: 20201229
